FAERS Safety Report 5614140-2 (Version None)
Quarter: 2008Q1

REPORT INFORMATION
  Report Type: 
  Country: None (occurrence: None)
  Receive Date: 20080205
  Receipt Date: 20080201
  Transmission Date: 20080703
  Serious: Yes (Other)
  Sender: FDA-Public Use
  Company Number: HQWYE130910AUG04

PATIENT

DRUGS (3)
  1. PREMPRO [Suspect]
  2. PROVERA [Suspect]
  3. CONJUGATED ESTROGENS [Suspect]

REACTIONS (2)
  - BREAST CANCER METASTATIC [None]
  - TRAUMATIC BRAIN INJURY [None]
